FAERS Safety Report 20016290 (Version 1)
Quarter: 2021Q4

REPORT INFORMATION
  Report Type: Spontaneous
  Country: US (occurrence: None)
  Receive Date: 20211103
  Receipt Date: 20211103
  Transmission Date: 20220303
  Serious: No
  Sender: FDA-Public Use
  Company Number: None

PATIENT
  Age: 78 Year
  Sex: Female
  Weight: 62.1 kg

DRUGS (3)
  1. PROLIA [Suspect]
     Active Substance: DENOSUMAB
     Indication: Osteoporosis
     Dosage: OTHER FREQUENCY : Q 6 MONTHS;?
     Route: 058
     Dates: start: 20211006, end: 20211006
  2. ATENOLOL [Concomitant]
     Active Substance: ATENOLOL
  3. ANTIHISTAMINES NOS [Concomitant]
     Active Substance: ANTIHISTAMINES NOS

REACTIONS (5)
  - Pain in extremity [None]
  - Arthralgia [None]
  - Pain in extremity [None]
  - Muscle spasms [None]
  - Burning sensation [None]

NARRATIVE: CASE EVENT DATE: 20211006
